FAERS Safety Report 5011553-7 (Version None)
Quarter: 2006Q2

REPORT INFORMATION
  Report Type: 
  Country: None (occurrence: None)
  Receive Date: 20060524
  Receipt Date: 20060515
  Transmission Date: 20061013
  Serious: Yes (Other)
  Sender: FDA-Public Use
  Company Number: TPA2006A00446

PATIENT
  Sex: 0

DRUGS (8)
  1. PIOGLITAZONE HCL [Suspect]
     Indication: CORONARY ARTERY RESTENOSIS
     Dosage: 30 MG, 1 IN 1 D, PER ORAL
     Route: 048
  2. PIOGLITAZONE HCL [Suspect]
     Indication: PROPHYLAXIS
     Dosage: 30 MG, 1 IN 1 D, PER ORAL
     Route: 048
  3. ASPIRIN [Concomitant]
  4. HEPARIN BOLUS (HEPARIN) [Concomitant]
  5. UNKNOWN BETA BLOCKERS (BETA BLOCKING AGENTS) [Concomitant]
  6. UNKNOWN STATINS (ALL OTHER THERAPEUTIC PRODUCTS) [Concomitant]
  7. UNKNOWN ANGIOTENSIN-CONVERTING ENZYME (ALL OTHER THERAPEUTIC PRODUCTS) [Concomitant]
  8. CLOPIDOGREL (CLOPIDOGREL) (75 MILLIGRAM) [Concomitant]

REACTIONS (1)
  - NEOPLASM MALIGNANT [None]
